FAERS Safety Report 5873039-7 (Version None)
Quarter: 2008Q3

REPORT INFORMATION
  Report Type: 
  Country: None (occurrence: None)
  Receive Date: 20080905
  Receipt Date: 20080826
  Transmission Date: 20090109
  Serious: Yes (Other)
  Sender: FDA-Public Use
  Company Number: US-PFIZER INC-2008073992

PATIENT
  Sex: Female
  Weight: 77.7 kg

DRUGS (5)
  1. CHANTIX [Suspect]
     Indication: SMOKING CESSATION THERAPY
  2. SEROQUEL [Concomitant]
  3. PROVIGIL [Concomitant]
  4. NEURONTIN [Concomitant]
  5. VALIUM [Concomitant]

REACTIONS (11)
  - ANOREXIA [None]
  - BREAST SWELLING [None]
  - DECREASED INTEREST [None]
  - DEPRESSION [None]
  - FACIAL PALSY [None]
  - HYPOAESTHESIA FACIAL [None]
  - HYPOAESTHESIA ORAL [None]
  - MUSCLE TWITCHING [None]
  - TRANSIENT ISCHAEMIC ATTACK [None]
  - URINARY TRACT INFECTION [None]
  - WEIGHT INCREASED [None]
